FAERS Safety Report 7285304-X (Version None)
Quarter: 2011Q1

REPORT INFORMATION
  Report Type: 
  Country: None (occurrence: None)
  Receive Date: 20110210
  Receipt Date: 20110202
  Transmission Date: 20110831
  Serious: Yes (Other)
  Sender: FDA-Public Use
  Company Number: HU-GENENTECH-313409

PATIENT
  Age: 79 Year
  Sex: Female
  Weight: 63 kg

DRUGS (4)
  1. MABTHERA [Suspect]
     Indication: LYMPHOMA
     Dosage: 400 MG, Q3W
     Route: 065
  2. VINCRISTINE [Suspect]
     Indication: LYMPHOMA
     Dosage: 1 MG, Q3W
     Route: 065
  3. ENDOXAN [Suspect]
     Indication: LYMPHOMA
     Dosage: 600 MG, Q3W
     Route: 065
  4. DOXORUBICIN [Suspect]
     Indication: LYMPHOMA
     Dosage: 60 MG, Q3W
     Route: 065

REACTIONS (1)
  - AGRANULOCYTOSIS [None]
